FAERS Safety Report 10231988 (Version 4)
Quarter: 2015Q4

REPORT INFORMATION
  Report Type: Report from Study
  Country: JP (occurrence: JP)
  Receive Date: 20140612
  Receipt Date: 20151015
  Transmission Date: 20160304
  Serious: Yes (Death, Life-Threatening, Hospitalization, Other)
  Sender: FDA-Public Use
  Company Number: JP-009507513-1406JPN004720

PATIENT
  Age: 68 Year
  Sex: Male

DRUGS (20)
  1. ZOLINZA [Suspect]
     Active Substance: VORINOSTAT
     Dosage: 200 MG, QD
     Route: 048
     Dates: start: 20130703, end: 20130723
  2. ZOLINZA [Suspect]
     Active Substance: VORINOSTAT
     Dosage: 400 MG, QD
     Route: 048
     Dates: start: 20130724, end: 20130903
  3. ZOLINZA [Suspect]
     Active Substance: VORINOSTAT
     Dosage: 200 MG, QD
     Route: 048
     Dates: start: 20131016, end: 20131022
  4. ZOLINZA [Suspect]
     Active Substance: VORINOSTAT
     Dosage: 300 MG, QD
     Route: 048
     Dates: start: 20131101, end: 20131102
  5. AVAPRO [Concomitant]
     Active Substance: IRBESARTAN
     Indication: HYPERTENSION
     Dosage: 100 MG, QD
     Route: 048
     Dates: start: 20130415
  6. BONALON [Concomitant]
     Active Substance: ALENDRONATE SODIUM
     Indication: OSTEOPOROSIS PROPHYLAXIS
     Dosage: 35 MG, QW
     Route: 048
     Dates: start: 20130415, end: 20140116
  7. ZOLINZA [Suspect]
     Active Substance: VORINOSTAT
     Dosage: 300 MG, QD
     Route: 048
     Dates: start: 20130904, end: 20131001
  8. FEBURIC [Concomitant]
     Active Substance: FEBUXOSTAT
     Indication: PROPHYLAXIS
     Dosage: 40 MG, QD
     Route: 048
     Dates: start: 20130415, end: 20140121
  9. URALYT U [Concomitant]
     Indication: PROPHYLAXIS
     Dosage: 0.5 G, QD
     Route: 048
     Dates: start: 20130415, end: 20140121
  10. BAKTAR [Concomitant]
     Active Substance: SULFAMETHOXAZOLE\TRIMETHOPRIM
     Indication: INFECTION PROPHYLAXIS
     Dosage: 1 DOSAGE, QD
     Route: 048
     Dates: start: 20130415
  11. ZOLINZA [Suspect]
     Active Substance: VORINOSTAT
     Dosage: 400 MG, QD
     Route: 048
     Dates: start: 20131002, end: 20131008
  12. ZOLINZA [Suspect]
     Active Substance: VORINOSTAT
     Dosage: 200 MG, QD
     Route: 048
     Dates: start: 20131028, end: 20131031
  13. ZOLINZA [Suspect]
     Active Substance: VORINOSTAT
     Dosage: 200 MG, QD
     Route: 048
     Dates: start: 20131114, end: 20140122
  14. ADALAT CC [Concomitant]
     Active Substance: NIFEDIPINE
     Dosage: 20 MG, QD
     Route: 048
     Dates: end: 20140121
  15. ZOLINZA [Suspect]
     Active Substance: VORINOSTAT
     Indication: MYCOSIS FUNGOIDES
     Dosage: 400 MG, QD
     Route: 048
     Dates: start: 20130415, end: 20130702
  16. ZOLINZA [Suspect]
     Active Substance: VORINOSTAT
     Dosage: 300 MG, QD
     Route: 048
     Dates: start: 20131009, end: 20131015
  17. ADALAT CC [Concomitant]
     Active Substance: NIFEDIPINE
     Indication: HYPERTENSION
     Dosage: 20 MG, BID
     Route: 048
     Dates: start: 20130415
  18. ALESION [Concomitant]
     Active Substance: EPINASTINE HYDROCHLORIDE
     Indication: PRURITUS
     Dosage: 20 MG, QD
     Route: 048
     Dates: start: 20130415
  19. PREDONINE [Concomitant]
     Active Substance: PREDNISOLONE\PREDNISOLONE ACETATE\PREDNISOLONE SODIUM SUCCINATE
     Indication: MYCOSIS FUNGOIDES
     Dosage: 20 MG, QD
     Route: 048
     Dates: start: 20130724, end: 20131102
  20. ZOLINZA [Suspect]
     Active Substance: VORINOSTAT
     Dosage: 400 MG, QD
     Route: 048
     Dates: start: 20131103, end: 20131105

REACTIONS (10)
  - Hyperkalaemia [Not Recovered/Not Resolved]
  - Platelet count decreased [Recovered/Resolved]
  - Gastrointestinal haemorrhage [Fatal]
  - Blood creatine increased [Recovering/Resolving]
  - Renal impairment [Recovered/Resolved]
  - Blood creatinine increased [Recovering/Resolving]
  - Anaemia [Not Recovered/Not Resolved]
  - Blood creatinine increased [Recovered/Resolved]
  - Platelet count decreased [Recovered/Resolved]
  - Platelet count decreased [Recovered/Resolved]

NARRATIVE: CASE EVENT DATE: 20130613
